FAERS Safety Report 8236371-8 (Version None)
Quarter: 2012Q1

REPORT INFORMATION
  Report Type: 
  Country: None (occurrence: None)
  Receive Date: 20120327
  Receipt Date: 20120321
  Transmission Date: 20120608
  Serious: Yes (Death, Life-Threatening)
  Sender: FDA-Public Use
  Company Number: CA-JNJFOC-20120202681

PATIENT
  Sex: Male
  Weight: 30.84 kg

DRUGS (2)
  1. ETANERCEPT [Suspect]
     Indication: PRODUCT USED FOR UNKNOWN INDICATION
     Dosage: DISCONTINUED IN THE INTERVAL OF THE ADVERSE EVENT
     Dates: start: 20070601, end: 20111103
  2. USTIKINUMAB [Suspect]
     Indication: PSORIASIS
     Route: 058
     Dates: start: 20070901, end: 20071001

REACTIONS (1)
  - PANCREATIC CARCINOMA METASTATIC [None]
